FAERS Safety Report 5641791-1 (Version None)
Quarter: 2008Q1

REPORT INFORMATION
  Report Type: 
  Country: None (occurrence: None)
  Receive Date: 20080227
  Receipt Date: 20080225
  Transmission Date: 20080703
  Serious: Yes (Death, Hospitalization, Other)
  Sender: FDA-Public Use
  Company Number: PHNU2007DE01751

PATIENT
  Age: 57 Year
  Sex: Male

DRUGS (13)
  1. CARBAMAZEPINE [Suspect]
     Dates: end: 20070401
  2. DIURETICS [Concomitant]
  3. TEGRETAL RETARD [Suspect]
     Indication: BIPOLAR DISORDER
     Dosage: 400 MG, QD
     Route: 048
     Dates: start: 20070429, end: 20070505
  4. METFORMIN HCL [Concomitant]
  5. ACETYLSALICYLIC ACID [Concomitant]
  6. PLAVIX [Concomitant]
  7. RAMIPRIL [Concomitant]
     Indication: CARDIAC FAILURE
     Dosage: 5 MG/D
     Route: 048
     Dates: start: 20070427
  8. HYDROCHLOROTHIAZIDE [Concomitant]
     Indication: CARDIAC FAILURE
     Dosage: 25 MG/D
     Route: 048
     Dates: start: 20070427
  9. SPIRONOLACTONE [Concomitant]
     Indication: CARDIAC FAILURE
     Dosage: 50 MG/D
     Route: 048
     Dates: start: 20070427
  10. INSIDON [Concomitant]
     Indication: BIPOLAR DISORDER
     Dosage: 50 MG/D
     Route: 048
     Dates: start: 20070427
  11. SIMVAHEXAL [Concomitant]
     Indication: ISCHAEMIC HEART DISEASE PROPHYLAXIS
     Dosage: 40 MG/D
     Route: 048
     Dates: start: 20070427
  12. ROCEPHIN [Concomitant]
     Indication: PNEUMONIA
     Dosage: 2000 MG/D
     Route: 042
     Dates: start: 20070427
  13. CLEXANE [Concomitant]
     Indication: ATRIAL FIBRILLATION
     Dosage: 120 MG/D
     Route: 058
     Dates: start: 20070504

REACTIONS (30)
  - APHASIA [None]
  - BRAIN OEDEMA [None]
  - CARDIAC FAILURE [None]
  - CARDIAC MASSAGE [None]
  - CARDIO-RESPIRATORY ARREST [None]
  - CHEST PAIN [None]
  - COLD SWEAT [None]
  - CONVULSION [None]
  - CSF TEST ABNORMAL [None]
  - DELUSION [None]
  - DEPRESSION [None]
  - DISORIENTATION [None]
  - DISTURBANCE IN ATTENTION [None]
  - DRUG TOXICITY [None]
  - DYSPNOEA [None]
  - ELECTROCARDIOGRAM CHANGE [None]
  - HEMIPARESIS [None]
  - HYPERKALAEMIA [None]
  - HYPERTENSIVE CRISIS [None]
  - HYPONATRAEMIA [None]
  - LACTIC ACIDOSIS [None]
  - OVERDOSE [None]
  - PHIMOSIS [None]
  - PLEOCYTOSIS [None]
  - RALES [None]
  - RESUSCITATION [None]
  - SUBARACHNOID HAEMORRHAGE [None]
  - SUICIDE ATTEMPT [None]
  - URINARY RETENTION [None]
  - VENTRICULAR TACHYCARDIA [None]
